FAERS Safety Report 15490427 (Version 1)
Quarter: 2018Q4

REPORT INFORMATION
  Report Type: Report from Study
  Country: None (occurrence: FR)
  Receive Date: 20181011
  Receipt Date: 20181011
  Transmission Date: 20190205
  Serious: No
  Sender: FDA-Public Use
  Company Number: FR-BIOVERATIV-2018BV000703

PATIENT
  Age: 53 Year
  Sex: Male

DRUGS (1)
  1. ELOCTA [Suspect]
     Active Substance: EFMOROCTOCOG ALFA
     Indication: FACTOR VIII DEFICIENCY
     Route: 058
     Dates: start: 2017

REACTIONS (4)
  - Medication error [Unknown]
  - Haemarthrosis [Unknown]
  - Product dose omission [Unknown]
  - Product use complaint [Unknown]
